FAERS Safety Report 5145012-8 (Version None)
Quarter: 2006Q4

REPORT INFORMATION
  Report Type: 
  Country: None (occurrence: None)
  Receive Date: 20061107
  Receipt Date: 20061025
  Transmission Date: 20070319
  Serious: Yes (Other)
  Sender: FDA-Public Use
  Company Number: GR-AMGEN-UK198145

PATIENT
  Age: 60 Year
  Sex: Female
  Weight: 58 kg

DRUGS (7)
  1. KINERET [Suspect]
     Indication: RHEUMATOID ARTHRITIS
     Route: 058
     Dates: start: 20040915, end: 20060701
  2. ARAVA [Suspect]
     Route: 048
     Dates: start: 20030101, end: 20060701
  3. HUMIRA [Concomitant]
     Route: 058
     Dates: start: 20060701, end: 20060901
  4. PREZOLON [Concomitant]
     Route: 048
  5. IBANDRONATE [Concomitant]
     Route: 048
     Dates: start: 20060601
  6. METHOTREXATE [Concomitant]
     Route: 065
  7. NEORAL [Concomitant]
     Route: 065

REACTIONS (1)
  - MALIGNANT MELANOMA [None]
